FAERS Safety Report 7022723-0 (Version None)
Quarter: 2010Q3

REPORT INFORMATION
  Report Type: 
  Country: None (occurrence: None)
  Receive Date: 20100930
  Receipt Date: 20100924
  Transmission Date: 20110219
  Serious: Yes (Death, Hospitalization)
  Sender: FDA-Public Use
  Company Number: A0836826A

PATIENT
  Age: 39 Year
  Sex: Male

DRUGS (6)
  1. AVANDIA [Suspect]
     Dosage: 4MG PER DAY
     Route: 048
     Dates: end: 20020124
  2. TRICOR [Concomitant]
  3. LIPITOR [Concomitant]
  4. WELCHOL [Concomitant]
  5. GLYBURIDE [Concomitant]
  6. GLUCOPHAGE [Concomitant]

REACTIONS (5)
  - ATRIAL FLUTTER [None]
  - CARDIO-RESPIRATORY ARREST [None]
  - CARDIOGENIC SHOCK [None]
  - MYOCARDIAL INFARCTION [None]
  - PANCREATITIS [None]
